FAERS Safety Report 6081313-7 (Version None)
Quarter: 2009Q1

REPORT INFORMATION
  Report Type: 
  Country: None (occurrence: None)
  Receive Date: 20090218
  Receipt Date: 20090212
  Transmission Date: 20090719
  Serious: Yes (Other)
  Sender: FDA-Public Use
  Company Number: US-RANBAXY-2009US-21797

PATIENT

DRUGS (2)
  1. ISOTRETINOIN [Suspect]
     Indication: GLIOBLASTOMA
     Dosage: 40 MG, UNK
     Route: 048
     Dates: end: 20081229
  2. CLARAVIS [Suspect]
     Indication: GLIOBLASTOMA
     Dosage: 10 MG, UNK
     Route: 048

REACTIONS (2)
  - GLIOBLASTOMA MULTIFORME [None]
  - OFF LABEL USE [None]
